FAERS Safety Report 7687923-5 (Version None)
Quarter: 2011Q3

REPORT INFORMATION
  Report Type: 
  Country: None (occurrence: None)
  Receive Date: 20110817
  Receipt Date: 20110810
  Transmission Date: 20111222
  Serious: Yes (Other)
  Sender: FDA-Public Use
  Company Number: US-AMGEN-USASP2011040854

PATIENT
  Age: 47 Year
  Sex: Male

DRUGS (2)
  1. NEULASTA [Suspect]
     Indication: CHEMOTHERAPY
     Dosage: 6 MG, UNK
     Dates: start: 20110601
  2. ANTINEOPLASTIC AGENTS [Concomitant]

REACTIONS (2)
  - PLATELET COUNT DECREASED [None]
  - MEDICATION ERROR [None]
